FAERS Safety Report 11328283 (Version 1)
Quarter: 2015Q3

REPORT INFORMATION
  Report Type: Spontaneous
  Country: US (occurrence: US)
  Receive Date: 20150731
  Receipt Date: 20150731
  Transmission Date: 20151125
  Serious: Yes (Other)
  Sender: FDA-Public Use
  Company Number: US-TAKEDA-2014TUS010306

PATIENT
  Age: 8 Decade
  Sex: Female

DRUGS (3)
  1. COLCRYS [Suspect]
     Active Substance: COLCHICINE
     Indication: GOUT
     Dosage: 2 TABLETS, QD
     Route: 048
  2. SIMVASTATIN. [Concomitant]
     Active Substance: SIMVASTATIN
     Indication: HYPERCHOLESTEROLAEMIA
     Dosage: UNK
  3. COLCRYS [Suspect]
     Active Substance: COLCHICINE
     Dosage: 1 TABLETS, QD
     Route: 048

REACTIONS (1)
  - Rhabdomyolysis [Recovered/Resolved]
